FAERS Safety Report 15899845 (Version 3)
Quarter: 2019Q3

REPORT INFORMATION
  Report Type: Spontaneous
  Country: US (occurrence: US)
  Receive Date: 20190201
  Receipt Date: 20190718
  Transmission Date: 20191004
  Serious: No
  Sender: FDA-Public Use
  Company Number: US-PFIZER INC-2019048476

PATIENT
  Age: 69 Year
  Sex: Female

DRUGS (11)
  1. DOCETAXEL. [Suspect]
     Active Substance: DOCETAXEL
     Dosage: 118/124 MG, CYCLIC (EVERY 4 WEEKS, 20 CYCLES)
     Dates: start: 2015, end: 2016
  2. TAXOTERE [Suspect]
     Active Substance: DOCETAXEL
     Dosage: 118/124 MG, CYCLIC (EVERY 4 WEEKS, 20 CYCLES)
     Dates: start: 2015, end: 2016
  3. TAXOTERE [Suspect]
     Active Substance: DOCETAXEL
     Indication: NON-SMALL CELL LUNG CANCER METASTATIC
     Dosage: UNK
     Dates: start: 20130101, end: 20171231
  4. DOCETAXEL. [Suspect]
     Active Substance: DOCETAXEL
     Indication: NON-SMALL CELL LUNG CANCER METASTATIC
     Dosage: UNK
     Dates: start: 20130101, end: 20171231
  5. FOLIC ACID. [Concomitant]
     Active Substance: FOLIC ACID
     Dosage: UNK
  6. LEVOTHYROXINE. [Concomitant]
     Active Substance: LEVOTHYROXINE
     Dosage: UNK
     Dates: start: 2010
  7. ALIMTA [Concomitant]
     Active Substance: PEMETREXED DISODIUM
     Indication: CHEMOTHERAPY
     Dosage: UNK
  8. CITALOPRAM [Concomitant]
     Active Substance: CITALOPRAM HYDROBROMIDE
     Dosage: UNK
     Dates: start: 2010
  9. ALLOPURINOL. [Concomitant]
     Active Substance: ALLOPURINOL
     Dosage: UNK
     Dates: start: 2010
  10. DOCEFREZ [Suspect]
     Active Substance: DOCETAXEL ANHYDROUS
     Dosage: UNK
     Dates: start: 20130101, end: 20171231
  11. PARAPLATIN [Concomitant]
     Active Substance: CARBOPLATIN
     Indication: CHEMOTHERAPY
     Dosage: UNK

REACTIONS (5)
  - Hair disorder [Not Recovered/Not Resolved]
  - Hair texture abnormal [Not Recovered/Not Resolved]
  - Hair colour changes [Not Recovered/Not Resolved]
  - Madarosis [Not Recovered/Not Resolved]
  - Alopecia [Not Recovered/Not Resolved]

NARRATIVE: CASE EVENT DATE: 20160101
